FAERS Safety Report 10741184 (Version 1)
Quarter: 2015Q1

REPORT INFORMATION
  Report Type: Spontaneous
  Country: US (occurrence: US)
  Receive Date: 20150127
  Receipt Date: 20150127
  Transmission Date: 20150721
  Serious: Yes (Death, Other)
  Sender: FDA-Public Use
  Company Number: US-009507513-1501USA007692

PATIENT
  Age: 68 Year
  Sex: Male

DRUGS (4)
  1. FOLIC ACID. [Suspect]
     Active Substance: FOLIC ACID
     Route: 048
  2. SALICYLIC ACID. [Suspect]
     Active Substance: SALICYLIC ACID
     Route: 048
  3. BENZONATATE. [Suspect]
     Active Substance: BENZONATATE
     Route: 048
  4. FUROSEMIDE. [Suspect]
     Active Substance: FUROSEMIDE
     Dosage: UNK
     Route: 048

REACTIONS (2)
  - Completed suicide [Fatal]
  - Toxicity to various agents [Fatal]
